FAERS Safety Report 11450597 (Version 2)
Quarter: 2015Q3

REPORT INFORMATION
  Report Type: Report from Study
  Country: JP (occurrence: JP)
  Receive Date: 20150903
  Receipt Date: 20150910
  Transmission Date: 20151125
  Serious: Yes (Death, Other)
  Sender: FDA-Public Use
  Company Number: JP-009507513-1509JPN000815

PATIENT
  Age: 63 Year
  Sex: Female
  Weight: 37.7 kg

DRUGS (4)
  1. CUBICIN [Suspect]
     Active Substance: DAPTOMYCIN
     Indication: SKIN INFECTION
     Dosage: 6 MG/KG, QD
     Route: 041
     Dates: start: 20141029, end: 20141111
  2. CEFEPIME HYDROCHLORIDE. [Concomitant]
     Active Substance: CEFEPIME HYDROCHLORIDE
     Indication: SKIN INFECTION
     Dosage: DIVIDED DOSE FREQUENCY UNKNOWN
     Route: 041
     Dates: start: 20141023, end: 20141029
  3. CUBICIN [Suspect]
     Active Substance: DAPTOMYCIN
     Indication: SOFT TISSUE INFECTION
  4. VANCOMYCIN HYDROCHLORIDE. [Concomitant]
     Active Substance: VANCOMYCIN HYDROCHLORIDE
     Indication: SKIN INFECTION
     Dosage: DIVIDED DOSE FREQUENCY UNKNOWN
     Route: 041
     Dates: start: 20141027, end: 20141029

REACTIONS (5)
  - Overdose [Unknown]
  - White blood cell count increased [Fatal]
  - Lymphoma [Fatal]
  - Renal impairment [Fatal]
  - Blood alkaline phosphatase increased [Recovered/Resolved]

NARRATIVE: CASE EVENT DATE: 20141029
